FAERS Safety Report 12642060 (Version 5)
Quarter: 2019Q1

REPORT INFORMATION
  Report Type: Spontaneous
  Country: US (occurrence: US)
  Receive Date: 20160810
  Receipt Date: 20190226
  Transmission Date: 20190417
  Serious: Yes (Other)
  Sender: FDA-Public Use
  Company Number: US-BIOMARINAP-US-2016-110595

PATIENT
  Age: 27 Year
  Sex: Male

DRUGS (2)
  1. ALDURAZYME [Suspect]
     Active Substance: LARONIDASE
     Dosage: UNK
     Route: 041
     Dates: start: 20040824
  2. ALDURAZYME [Suspect]
     Active Substance: LARONIDASE
     Indication: MUCOPOLYSACCHARIDOSIS I
     Dosage: UNK
     Route: 041
     Dates: start: 20040517

REACTIONS (14)
  - Corneal disorder [Recovering/Resolving]
  - Decreased appetite [Unknown]
  - Inappropriate schedule of product administration [Recovering/Resolving]
  - Abdominal discomfort [Recovering/Resolving]
  - Peripheral swelling [Recovering/Resolving]
  - Increased appetite [Unknown]
  - Pulmonary congestion [Recovering/Resolving]
  - Hip surgery [Recovering/Resolving]
  - Constipation [Recovering/Resolving]
  - Pain [Unknown]
  - Fall [Unknown]
  - Malaise [Recovering/Resolving]
  - Head injury [Unknown]
  - Pleural effusion [Recovering/Resolving]

NARRATIVE: CASE EVENT DATE: 20160720
